FAERS Safety Report 5900095-X (Version None)
Quarter: 2008Q3

REPORT INFORMATION
  Report Type: 
  Country: None (occurrence: None)
  Receive Date: 20080926
  Receipt Date: 20080917
  Transmission Date: 20090109
  Serious: Yes (Hospitalization)
  Sender: FDA-Public Use
  Company Number: FR-AVENTIS-200813339FR

PATIENT
  Age: 55 Year
  Sex: Male

DRUGS (4)
  1. TAXOTERE [Suspect]
     Route: 042
     Dates: start: 20080801, end: 20080801
  2. KALETRA [Suspect]
     Route: 048
     Dates: start: 20040101, end: 20080813
  3. TRUVADA [Concomitant]
  4. BACTRIM [Concomitant]
     Indication: DRUG USE FOR UNKNOWN INDICATION

REACTIONS (4)
  - DRUG INTERACTION [None]
  - PYREXIA [None]
  - RASH SCARLATINIFORM [None]
  - SKIN TOXICITY [None]
